FAERS Safety Report 9430038 (Version 1)
Quarter: 2013Q3

REPORT INFORMATION
  Report Type: Report from Study
  Country: US (occurrence: US)
  Receive Date: 20130730
  Receipt Date: 20130730
  Transmission Date: 20140515
  Serious: No
  Sender: FDA-Public Use
  Company Number: US-ABBOTT-13P-163-1076758-00

PATIENT
  Sex: Male

DRUGS (9)
  1. NIASPAN (COATED) [Suspect]
     Indication: PRODUCT USED FOR UNKNOWN INDICATION
     Dosage: AFTER EVENING MEAL
     Route: 048
     Dates: start: 201104
  2. NIASPAN (COATED) [Suspect]
     Dosage: AFTER EVENING MEAL
     Route: 048
  3. NIASPAN (COATED) [Suspect]
     Indication: PRODUCT USED FOR UNKNOWN INDICATION
  4. ASPIRIN [Concomitant]
     Indication: PRODUCT USED FOR UNKNOWN INDICATION
  5. FISH OIL [Concomitant]
     Indication: PRODUCT USED FOR UNKNOWN INDICATION
  6. GARLIC [Concomitant]
     Indication: PRODUCT USED FOR UNKNOWN INDICATION
  7. ZINC [Concomitant]
     Indication: PRODUCT USED FOR UNKNOWN INDICATION
  8. VIT D3 [Concomitant]
     Indication: PRODUCT USED FOR UNKNOWN INDICATION
  9. OTHER UNKNOWN MEDICATIONS [Concomitant]
     Indication: PRODUCT USED FOR UNKNOWN INDICATION

REACTIONS (6)
  - Prostatitis [Recovered/Resolved]
  - Prostatitis [Recovered/Resolved]
  - Nephrolithiasis [Unknown]
  - Abdominal discomfort [Not Recovered/Not Resolved]
  - Flatulence [Not Recovered/Not Resolved]
  - Flushing [Not Recovered/Not Resolved]
